FAERS Safety Report 4624326-1 (Version None)
Quarter: 2005Q1

REPORT INFORMATION
  Report Type: 
  Country: None (occurrence: None)
  Receive Date: 20050330
  Receipt Date: 20050330
  Transmission Date: 20050727
  Serious: Yes (Hospitalization)
  Sender: FDA-Public Use
  Company Number: None

PATIENT
  Age: 62 Year
  Sex: Female
  Weight: 62.8 kg

DRUGS (3)
  1. OXALIPLATIN 130 MG/M2 IV DAY 1 [Suspect]
     Indication: METASTASIS
     Dates: start: 20050223
  2. OXALIPLATIN 130 MG/M2 IV DAY 1 [Suspect]
     Indication: NEOPLASM MALIGNANT
     Dates: start: 20050223
  3. CAPECITABINE 150 MG/M2 PO X 14 DAYS [Suspect]
     Dates: start: 20050223

REACTIONS (2)
  - HYPOKALAEMIA [None]
  - PANCYTOPENIA [None]
